FAERS Safety Report 7026963-6 (Version None)
Quarter: 2010Q4

REPORT INFORMATION
  Report Type: 
  Country: None (occurrence: None)
  Receive Date: 20101004
  Receipt Date: 20100923
  Transmission Date: 20110411
  Serious: Yes (Other)
  Sender: FDA-Public Use
  Company Number: CA-JNJFOC-20100307571

PATIENT
  Sex: Female
  Weight: 74 kg

DRUGS (1)
  1. REMICADE [Suspect]
     Indication: RHEUMATOID ARTHRITIS
     Route: 042

REACTIONS (6)
  - DIZZINESS [None]
  - HEARING IMPAIRED [None]
  - HYPOAESTHESIA FACIAL [None]
  - KNEE ARTHROPLASTY [None]
  - NAUSEA [None]
  - PARAESTHESIA [None]
